FAERS Safety Report 19476657 (Version 1)
Quarter: 2021Q2

REPORT INFORMATION
  Report Type: Spontaneous
  Country: FR (occurrence: FR)
  Receive Date: 20210630
  Receipt Date: 20210630
  Transmission Date: 20210717
  Serious: Yes (Hospitalization, Disabling)
  Sender: FDA-Public Use
  Company Number: FR-ACCORD-229517

PATIENT
  Age: 34 Year
  Sex: Female
  Weight: 80 kg

DRUGS (16)
  1. QUETIAPINE. [Suspect]
     Active Substance: QUETIAPINE
     Indication: BIPOLAR DISORDER
     Route: 048
     Dates: start: 20210219
  2. OXAZEPAM. [Concomitant]
     Active Substance: OXAZEPAM
  3. CETIRIZINE (DICHLORHYDRATE DE) [Concomitant]
     Active Substance: CETIRIZINE HYDROCHLORIDE
  4. TERALITHE [Concomitant]
     Active Substance: LITHIUM CARBONATE
     Indication: BIPOLAR DISORDER
     Route: 048
     Dates: start: 20210324
  5. CYAMEMAZINE/CYAMEMAZINE TARTRATE [Suspect]
     Active Substance: CYAMEMAZINE
     Indication: BIPOLAR DISORDER
     Route: 048
     Dates: start: 20210401
  6. THERALENE [Suspect]
     Active Substance: TRIMEPRAZINE
     Indication: BIPOLAR DISORDER
     Route: 048
     Dates: start: 20210324
  7. PARACETAMOL [Concomitant]
     Active Substance: ACETAMINOPHEN
  8. PANTOPRAZOLE [Suspect]
     Active Substance: PANTOPRAZOLE
     Indication: PRODUCT USED FOR UNKNOWN INDICATION
     Route: 048
     Dates: start: 20210211
  9. TRAMADOL. [Suspect]
     Active Substance: TRAMADOL
     Indication: PRODUCT USED FOR UNKNOWN INDICATION
     Route: 048
     Dates: start: 20210324
  10. NICOPATCH [Concomitant]
     Active Substance: NICOTINE
  11. NICOTINE. [Concomitant]
     Active Substance: NICOTINE
  12. CYANOCOBALAMIN/THIAMINE HYDROCHLORIDE [Concomitant]
  13. SPECIAFOLDINE [Concomitant]
     Active Substance: FOLIC ACID
  14. FUMAFER [Suspect]
     Active Substance: FERROUS FUMARATE
     Indication: PRODUCT USED FOR UNKNOWN INDICATION
     Route: 048
     Dates: start: 20210212
  15. AVLOCARDYL [Concomitant]
     Active Substance: PROPRANOLOL HYDROCHLORIDE
  16. COLECALCIFEROL [Concomitant]
     Active Substance: CHOLECALCIFEROL

REACTIONS (1)
  - Megacolon [Recovered/Resolved with Sequelae]

NARRATIVE: CASE EVENT DATE: 20210330
